FAERS Safety Report 4507919-1 (Version None)
Quarter: 2004Q4

REPORT INFORMATION
  Report Type: 
  Country: None (occurrence: None)
  Receive Date: 20041122
  Receipt Date: 20041122
  Transmission Date: 20050328
  Serious: Yes (Hospitalization)
  Sender: FDA-Public Use
  Company Number: None

PATIENT
  Age: 66 Year
  Sex: Female
  Weight: 45.3597 kg

DRUGS (11)
  1. TOPOTECAN [Suspect]
     Indication: PANCREATIC CARCINOMA
     Dosage: 3.0 MG/M2 A DAY 1,8,15 Q 28 DAYS IV
     Route: 042
     Dates: start: 20041022
  2. TOPOTECAN [Suspect]
     Indication: PANCREATIC CARCINOMA
     Dosage: 3.0 MG/M2 A DAY 1,8,15 Q 28 DAYS IV
     Route: 042
     Dates: start: 20041029
  3. TOPOTECAN [Suspect]
     Indication: PANCREATIC CARCINOMA
     Dosage: 3.0 MG/M2 A DAY 1,8,15 Q 28 DAYS IV
     Route: 042
     Dates: start: 20041105
  4. OXALIPLATIN [Suspect]
     Indication: PANCREATIC CARCINOMA
     Dosage: 40 MG/M2 DAY 1,8,15 Q 28 DAYS IV
     Route: 042
     Dates: start: 20041022
  5. OXALIPLATIN [Suspect]
     Indication: PANCREATIC CARCINOMA
     Dosage: 40 MG/M2 DAY 1,8,15 Q 28 DAYS IV
     Route: 042
     Dates: start: 20041029
  6. OXALIPLATIN [Suspect]
     Indication: PANCREATIC CARCINOMA
     Dosage: 40 MG/M2 DAY 1,8,15 Q 28 DAYS IV
     Route: 042
     Dates: start: 20041115
  7. HYDROCODONE [Concomitant]
  8. OXYCONTIN [Concomitant]
  9. GLIPIZIDE [Concomitant]
  10. LORAZEPAM [Concomitant]
  11. PHENERGAN [Concomitant]

REACTIONS (4)
  - ABDOMINAL PAIN [None]
  - ANOREXIA [None]
  - NAUSEA [None]
  - VOMITING [None]
